FAERS Safety Report 8895911 (Version 1)
Quarter: 2012Q4

REPORT INFORMATION
  Report Type: 
  Country: US (occurrence: US)
  Receive Date: 20121107
  Receipt Date: 20121107
  Transmission Date: 20130627
  Serious: No
  Sender: FDA-Public Use
  Company Number: US-ASTRAZENECA-2012SE18574

PATIENT
  Age: 33 Year
  Sex: Female

DRUGS (1)
  1. ZOMIG [Suspect]
     Route: 045

REACTIONS (4)
  - Depressed mood [Unknown]
  - Migraine [Unknown]
  - Dyspepsia [Unknown]
  - Wrong drug administered [Unknown]
